FAERS Safety Report 12390383 (Version 1)
Quarter: 2016Q2

REPORT INFORMATION
  Report Type: Spontaneous
  Country: US (occurrence: US)
  Receive Date: 20160520
  Receipt Date: 20160520
  Transmission Date: 20160815
  Serious: No
  Sender: FDA-Public Use
  Company Number: ADR-2015-01420

PATIENT
  Age: 59 Year
  Sex: Female

DRUGS (4)
  1. COMPOUNDED BACLOFEN [Suspect]
     Active Substance: BACLOFEN
     Route: 037
     Dates: start: 20150715, end: 20150720
  2. BACLOFEN. [Suspect]
     Active Substance: BACLOFEN
     Route: 048
  3. COMPOUNDED BACLOFEN [Suspect]
     Active Substance: BACLOFEN
     Route: 037
     Dates: start: 20150720
  4. TIZANIDINE. [Suspect]
     Active Substance: TIZANIDINE

REACTIONS (5)
  - Pain [Unknown]
  - Muscle spasticity [Unknown]
  - Overdose [Unknown]
  - Asthenia [Unknown]
  - Lethargy [Unknown]
